FAERS Safety Report 5918485-8 (Version None)
Quarter: 2008Q4

REPORT INFORMATION
  Report Type: 
  Country: None (occurrence: None)
  Receive Date: 20081015
  Receipt Date: 20081006
  Transmission Date: 20090506
  Serious: Yes (Hospitalization)
  Sender: FDA-Public Use
  Company Number: US-SOLVAY-00207000791

PATIENT
  Age: 10508 Day
  Sex: Female
  Weight: 68 kg

DRUGS (7)
  1. PROMETRIUM [Suspect]
     Indication: OVARIAN CYST
     Dosage: DAILY DOSE: 100 MILLIGRAM(S)
     Route: 048
     Dates: start: 20061201, end: 20070401
  2. PROMETRIUM [Suspect]
     Dosage: DAILY DOSE: 100 MILLIGRAM(S)
     Route: 048
     Dates: start: 20070501
  3. PROMETRIUM [Suspect]
     Dosage: DAILY DOSE:  ^EVERY OTHER NIGHT AND SKIPPING DOSES^
     Route: 048
     Dates: start: 20080925, end: 20080929
  4. YAZ [Concomitant]
     Indication: OVARIAN CYST
     Dosage: DAILY DOSE:  UNKNOWN
     Route: 048
     Dates: start: 20061201
  5. VICODIN [Concomitant]
     Indication: NECK PAIN
     Dosage: DAILY DOSE:  1 TO 2 TABLETS
     Route: 048
     Dates: start: 20070401
  6. TYLENOL (CAPLET) [Concomitant]
     Indication: NECK PAIN
     Dosage: DAILY DOSE:  UNKNOWN
     Route: 048
  7. IBUPROFEN TABLETS [Concomitant]
     Indication: DRUG USE FOR UNKNOWN INDICATION
     Dosage: DAILY DOSE:  UNKNOWN
     Route: 048

REACTIONS (23)
  - ABDOMINAL PAIN UPPER [None]
  - ANXIETY [None]
  - BLOOD PRESSURE INCREASED [None]
  - CHEST PAIN [None]
  - DEPRESSED LEVEL OF CONSCIOUSNESS [None]
  - DIARRHOEA [None]
  - DYSPEPSIA [None]
  - FATIGUE [None]
  - HAEMORRHAGIC OVARIAN CYST [None]
  - HOT FLUSH [None]
  - HYPERHIDROSIS [None]
  - INFLUENZA [None]
  - INSOMNIA [None]
  - MALAISE [None]
  - MOOD SWINGS [None]
  - NECK INJURY [None]
  - NERVOUSNESS [None]
  - PALPITATIONS [None]
  - PERIPHERAL COLDNESS [None]
  - RASH GENERALISED [None]
  - THYROID CYST [None]
  - TREATMENT NONCOMPLIANCE [None]
  - URTICARIA [None]
